FAERS Safety Report 8475344-7 (Version None)
Quarter: 2012Q2

REPORT INFORMATION
  Report Type: 
  Country: None (occurrence: None)
  Receive Date: 20120628
  Receipt Date: 20110726
  Transmission Date: 20120825
  Serious: Yes (Other)
  Sender: FDA-Public Use
  Company Number: FR-ROCHE-1076405

PATIENT
  Age: 61 Year
  Sex: Male
  Weight: 105.1 kg

DRUGS (9)
  1. JOSACIN [Interacting]
     Indication: BRONCHITIS
     Dates: start: 20110404, end: 20110904
  2. CRESTOR [Concomitant]
  3. SITAGLIPTIN PHOSPHATE [Concomitant]
  4. NEULASTA [Suspect]
     Indication: PRODUCT USED FOR UNKNOWN INDICATION
  5. METFORMIN HCL [Concomitant]
  6. BEVACIZUMAB [Suspect]
     Indication: PRODUCT USED FOR UNKNOWN INDICATION
  7. ENBREL [Interacting]
     Indication: RHEUMATOID ARTHRITIS
     Route: 042
     Dates: start: 20070101
  8. IRBESARTAN [Concomitant]
  9. OMEPRAZOLE [Concomitant]

REACTIONS (7)
  - RHEUMATOID ARTHRITIS [None]
  - INFLUENZA [None]
  - LUNG INFECTION [None]
  - CONDITION AGGRAVATED [None]
  - DRUG INTERACTION [None]
  - ABDOMINAL PAIN UPPER [None]
  - COLITIS [None]
